FAERS Safety Report 5313918-2 (Version None)
Quarter: 2007Q2

REPORT INFORMATION
  Report Type: 
  Country: None (occurrence: None)
  Receive Date: 20070501
  Receipt Date: 20070420
  Transmission Date: 20071010
  Serious: Yes (Other)
  Sender: FDA-Public Use
  Company Number: AU-BRISTOL-MYERS SQUIBB COMPANY-13751839

PATIENT
  Age: 56 Year

DRUGS (10)
  1. SPRYCEL [Suspect]
  2. METHOTREXATE [Concomitant]
  3. MERCAPTOPURINE [Concomitant]
  4. CEFEPIME [Concomitant]
  5. VANCOMYCIN [Concomitant]
  6. FLUCONAZOLE [Concomitant]
  7. CYTARABINE [Concomitant]
  8. MEROPENEM [Concomitant]
  9. METRONIDAZOLE [Concomitant]
  10. MAXOLON [Concomitant]

REACTIONS (1)
  - NEPHRITIS INTERSTITIAL [None]
